FAERS Safety Report 4930615-3 (Version None)
Quarter: 2006Q1

REPORT INFORMATION
  Report Type: 
  Country: None (occurrence: None)
  Receive Date: 20060302
  Receipt Date: 20051215
  Transmission Date: 20060701
  Serious: Yes (Hospitalization, Other)
  Sender: FDA-Public Use
  Company Number: US-MERCK-0512USA02459

PATIENT
  Age: 55 Year
  Sex: Female

DRUGS (22)
  1. VIOXX [Suspect]
     Route: 048
  2. ZESTRIL [Concomitant]
     Route: 048
  3. LIBRAX CAPSULES [Concomitant]
     Route: 048
  4. AMBIEN [Concomitant]
     Route: 048
  5. ZOLOFT [Concomitant]
     Route: 048
  6. MOBIC [Concomitant]
     Route: 048
  7. SYNTHROID [Concomitant]
     Route: 048
  8. DEMADEX [Concomitant]
     Route: 048
  9. NEXIUM [Concomitant]
     Route: 048
  10. K-DUR 10 [Concomitant]
     Route: 048
  11. ASPIRIN [Concomitant]
     Route: 048
  12. VITAMINS (UNSPECIFIED) [Concomitant]
     Route: 048
  13. FOLIC ACID [Concomitant]
     Route: 065
  14. ULTRAM [Concomitant]
     Route: 048
  15. MOTRIN [Concomitant]
     Indication: PAIN
     Route: 048
  16. MOTRIN [Concomitant]
     Indication: MIGRAINE
     Route: 048
  17. RHINOCORT [Concomitant]
     Route: 065
  18. ASTELIN [Concomitant]
     Route: 065
  19. VITAMINS (UNSPECIFIED) [Concomitant]
     Route: 048
  20. MAXALT [Concomitant]
     Indication: HEADACHE
     Route: 065
  21. ALBUTEROL [Concomitant]
     Indication: WHEEZING
     Route: 065
  22. AZMACORT [Concomitant]
     Indication: WHEEZING
     Route: 065

REACTIONS (6)
  - BACK PAIN [None]
  - CEREBROVASCULAR ACCIDENT [None]
  - CHEST PAIN [None]
  - CHILLS [None]
  - PYREXIA [None]
  - TACHYCARDIA [None]
